FAERS Safety Report 8388295-3 (Version None)
Quarter: 2012Q2

REPORT INFORMATION
  Report Type: 
  Country: None (occurrence: None)
  Receive Date: 20120525
  Receipt Date: 20120515
  Transmission Date: 20120825
  Serious: No
  Sender: FDA-Public Use
  Company Number: US-ASTRAZENECA-2012SE22373

PATIENT
  Age: 8 Year
  Sex: Male

DRUGS (6)
  1. ALBUTEROL SULFATE [Concomitant]
  2. ASPIRIN [Concomitant]
  3. CIPROFLOXACIN HCL [Concomitant]
     Indication: RHEUMATIC FEVER
  4. SYMBICORT [Suspect]
     Indication: ASTHMA
     Dosage: 160/4.5 MCG, 2 PUFFS BID
     Route: 055
     Dates: start: 20090101
  5. ALLEGRA OTC [Concomitant]
     Indication: HYPERSENSITIVITY
  6. VENTOLIN [Concomitant]

REACTIONS (3)
  - OFF LABEL USE [None]
  - RHEUMATIC FEVER [None]
  - INTENTIONAL DRUG MISUSE [None]
